FAERS Safety Report 12130316 (Version 1)
Quarter: 2016Q1

REPORT INFORMATION
  Report Type: Spontaneous
  Country: US (occurrence: US)
  Receive Date: 20160229
  Receipt Date: 20160229
  Transmission Date: 20160526
  Serious: No
  Sender: FDA-Public Use
  Company Number: US-ACORDA-ACO_33092_2012

PATIENT
  Age: 63 Year
  Sex: Female

DRUGS (14)
  1. ANTIDEPRESSANTS [Concomitant]
     Active Substance: UNSPECIFIED INGREDIENT
     Indication: PRODUCT USED FOR UNKNOWN INDICATION
     Dosage: UNK
  2. SYNTHROID [Concomitant]
     Active Substance: LEVOTHYROXINE SODIUM
     Indication: PRODUCT USED FOR UNKNOWN INDICATION
     Dosage: UNK
  3. COPAXONE [Suspect]
     Active Substance: GLATIRAMER ACETATE
     Indication: PRODUCT USED FOR UNKNOWN INDICATION
     Dosage: 20 MG, UNK
     Route: 058
     Dates: start: 201405
  4. AMPYRA [Suspect]
     Active Substance: DALFAMPRIDINE
     Indication: MULTIPLE SCLEROSIS
     Dosage: 10 MG, Q 12 HRS
     Route: 048
     Dates: start: 201110
  5. AVINZA [Concomitant]
     Active Substance: MORPHINE SULFATE
     Indication: PRODUCT USED FOR UNKNOWN INDICATION
     Dosage: UNK
  6. VITAMIN B [Concomitant]
     Active Substance: VITAMIN B
     Indication: PRODUCT USED FOR UNKNOWN INDICATION
     Dosage: UNK
  7. TRAZODONE [Concomitant]
     Active Substance: TRAZODONE HYDROCHLORIDE
     Indication: PRODUCT USED FOR UNKNOWN INDICATION
  8. HYDROCHLOORTHIAZIDE [Concomitant]
     Active Substance: HYDROCHLOROTHIAZIDE
     Indication: PRODUCT USED FOR UNKNOWN INDICATION
  9. PROVIGIL [Concomitant]
     Active Substance: MODAFINIL
  10. VITAMIN D3 [Concomitant]
     Active Substance: CHOLECALCIFEROL
  11. COPAXONE [Suspect]
     Active Substance: GLATIRAMER ACETATE
     Dosage: 40 MG, UNK
     Route: 058
     Dates: start: 201405
  12. PRAVASTATIN [Concomitant]
     Active Substance: PRAVASTATIN\PRAVASTATIN SODIUM
     Indication: PRODUCT USED FOR UNKNOWN INDICATION
     Dosage: UNK
  13. MORPHINE [Concomitant]
     Active Substance: MORPHINE
     Indication: PRODUCT USED FOR UNKNOWN INDICATION
  14. ONDANSETRON [Concomitant]
     Active Substance: ONDANSETRON
     Indication: PRODUCT USED FOR UNKNOWN INDICATION

REACTIONS (17)
  - Injection site pain [Unknown]
  - Fatigue [Unknown]
  - Memory impairment [Unknown]
  - Hyperaesthesia [Unknown]
  - Diarrhoea [Unknown]
  - Nausea [Unknown]
  - Drug ineffective [Unknown]
  - Pain in extremity [Unknown]
  - Muscle spasms [Unknown]
  - Weight decreased [Unknown]
  - Hypoaesthesia [Unknown]
  - Insomnia [Unknown]
  - Nuclear magnetic resonance imaging abnormal [Unknown]
  - Vomiting [Unknown]
  - Urinary tract infection [Unknown]
  - Balance disorder [Unknown]
  - Nausea [Unknown]

NARRATIVE: CASE EVENT DATE: 201209
